FAERS Safety Report 21723649 (Version 1)
Quarter: 2022Q4

REPORT INFORMATION
  Report Type: Spontaneous
  Country: US (occurrence: US)
  Receive Date: 20221213
  Receipt Date: 20221213
  Transmission Date: 20230113
  Serious: Yes (Other)
  Sender: FDA-Public Use
  Company Number: US-AMGEN-USASP2022212412

PATIENT
  Age: 41 Year
  Sex: Female

DRUGS (13)
  1. PEGFILGRASTIM [Suspect]
     Active Substance: PEGFILGRASTIM
     Indication: Prophylaxis
     Dosage: UNK
     Route: 065
  2. BEVACIZUMAB [Suspect]
     Active Substance: BEVACIZUMAB
     Indication: Neuroendocrine carcinoma of the cervix
     Dosage: 15 MILLIGRAM/KILOGRAM, ON DAY 1 FOR Q3WK
     Route: 065
  3. CISPLATIN [Concomitant]
     Active Substance: CISPLATIN
     Dosage: 60 MILLIGRAM/SQ. METER, ON DAY 1, Q3WK
  4. ETOPOSIDE [Concomitant]
     Active Substance: ETOPOSIDE
     Dosage: 100 MILLIGRAM/SQ. METER, ON DAY 1-3
  5. PLATINUM [Concomitant]
     Active Substance: PLATINUM
  6. ATEZOLIZUMAB [Concomitant]
     Active Substance: ATEZOLIZUMAB
  7. DURVALUMAB [Concomitant]
     Active Substance: DURVALUMAB
  8. PEMBROLIZUMAB [Concomitant]
     Active Substance: PEMBROLIZUMAB
  9. IPILIMUMAB [Concomitant]
     Active Substance: IPILIMUMAB
  10. NIVOLUMAB [Concomitant]
     Active Substance: NIVOLUMAB
  11. CADONILIMAB [Concomitant]
     Active Substance: CADONILIMAB
  12. TOPOTECAN [Concomitant]
     Active Substance: TOPOTECAN HYDROCHLORIDE
     Dosage: 0.75 MILLIGRAM/SQ. METER, ON DAYS 1-3
  13. PACLITAXEL [Concomitant]
     Active Substance: PACLITAXEL
     Dosage: 175 MILLIGRAM/SQ. METER, ON DAY 1

REACTIONS (3)
  - Small cell carcinoma [Unknown]
  - Neuroendocrine carcinoma of the cervix [Unknown]
  - Therapy partial responder [Unknown]
